FAERS Safety Report 5165722-6 (Version None)
Quarter: 2006Q4

REPORT INFORMATION
  Report Type: 
  Country: None (occurrence: None)
  Receive Date: 20061128
  Receipt Date: 20061117
  Transmission Date: 20070319
  Serious: Yes (Death)
  Sender: FDA-Public Use
  Company Number: 2006AL003614

PATIENT
  Age: 69 Year
  Sex: Female

DRUGS (8)
  1. METFORMIN HCL [Suspect]
     Indication: DIABETES MELLITUS
     Dosage: 1.5 GM; QD; PO
     Route: 048
     Dates: start: 20020101, end: 20061014
  2. BISOPROLOL FUMARATE [Concomitant]
  3. INSULIN [Concomitant]
  4. SIMVASTATIN [Concomitant]
  5. CYANOCOBALAMIN [Concomitant]
  6. ACETYLSALICYLIC ACID SRT [Concomitant]
  7. PHOSPHORAL [Concomitant]
  8. LOSARTAN POTASSIUM [Concomitant]

REACTIONS (12)
  - BLOOD GLUCOSE DECREASED [None]
  - CARDIAC ARREST [None]
  - DEHYDRATION [None]
  - DEPRESSED LEVEL OF CONSCIOUSNESS [None]
  - FATIGUE [None]
  - GENERAL PHYSICAL HEALTH DETERIORATION [None]
  - HYPOTENSION [None]
  - HYPOVOLAEMIA [None]
  - LACTIC ACIDOSIS [None]
  - RENAL FAILURE [None]
  - RENAL TUBULAR NECROSIS [None]
  - URINARY RETENTION [None]
